FAERS Safety Report 4504590-X (Version None)
Quarter: 2004Q4

REPORT INFORMATION
  Report Type: 
  Country: None (occurrence: None)
  Receive Date: 20041118
  Receipt Date: 20040916
  Transmission Date: 20050328
  Serious: Yes (Death, Life-Threatening, Hospitalization, Disabling, Congenital Anomaly, Other)
  Sender: FDA-Public Use
  Company Number: US-GLAXOSMITHKLINE-A0525996A

PATIENT
  Sex: Male

DRUGS (5)
  1. ZOFRAN [Suspect]
     Indication: PROPHYLAXIS OF NAUSEA AND VOMITING
     Dosage: 4MG SEE DOSAGE TEXT
     Dates: start: 20030801, end: 20031201
  2. MULTIVITAMIN [Concomitant]
  3. PHENERGAN [Concomitant]
  4. UNISOM [Concomitant]
  5. VITAMIN B6 [Concomitant]

REACTIONS (13)
  - CAESAREAN SECTION [None]
  - DEATH [None]
  - DRUG EXPOSURE DURING PREGNANCY [None]
  - FEEDING PROBLEM IN NEWBORN [None]
  - FOOD INTOLERANCE [None]
  - HEART DISEASE CONGENITAL [None]
  - HYPOPLASTIC LEFT HEART SYNDROME [None]
  - NEONATAL TACHYPNOEA [None]
  - PIGMENTATION DISORDER [None]
  - POOR PERIPHERAL CIRCULATION [None]
  - PULSE PRESSURE DECREASED [None]
  - TACHYPNOEA [None]
  - VENTRICULAR HYPOPLASIA [None]
